FAERS Safety Report 6295734-0 (Version None)
Quarter: 2009Q3

REPORT INFORMATION
  Report Type: 
  Country: None (occurrence: None)
  Receive Date: 20090803
  Receipt Date: 20090803
  Transmission Date: 20100115
  Serious: Yes (Other)
  Sender: FDA-Public Use
  Company Number: None

PATIENT
  Age: 74 Year
  Sex: Male
  Weight: 108.8633 kg

DRUGS (2)
  1. LEVAQUIN [Suspect]
     Indication: CYSTITIS
     Dosage: HOS   IV
     Route: 042
     Dates: start: 20090620, end: 20090621
  2. LEVAQUIN [Suspect]
     Dosage: HOME 1 TABLET ORAL ORAL
     Route: 048
     Dates: start: 20090621

REACTIONS (1)
  - TENDON RUPTURE [None]
